FAERS Safety Report 5534237-5 (Version None)
Quarter: 2007Q4

REPORT INFORMATION
  Report Type: 
  Country: None (occurrence: None)
  Receive Date: 20071130
  Receipt Date: 20071130
  Transmission Date: 20080405
  Serious: Yes (Other)
  Sender: FDA-Public Use
  Company Number: None

PATIENT

DRUGS (1)
  1. IBUPROFEN 200MG LNK INTERNATIONAL [Suspect]
     Dosage: 3 TABLETS I TOOK ONLY ONCE

REACTIONS (6)
  - DYSGEUSIA [None]
  - EMOTIONAL DISTRESS [None]
  - MALAISE [None]
  - PAROSMIA [None]
  - PHARMACEUTICAL PRODUCT COMPLAINT [None]
  - THERAPEUTIC PRODUCT CONTAMINATION [None]
